FAERS Safety Report 6970380-1 (Version None)
Quarter: 2010Q3

REPORT INFORMATION
  Report Type: 
  Country: None (occurrence: None)
  Receive Date: 20100908
  Receipt Date: 20100810
  Transmission Date: 20110219
  Serious: Yes (Hospitalization, Other)
  Sender: FDA-Public Use
  Company Number: PHEH2006US10970

PATIENT
  Sex: Female
  Weight: 86.168 kg

DRUGS (52)
  1. AREDIA [Suspect]
     Dosage: 90 MG Q4W
     Route: 042
     Dates: start: 20031105, end: 20050105
  2. ZOMETA [Suspect]
     Dosage: 4 MG, QW4
     Dates: start: 20050203
  3. FEMARA [Concomitant]
     Dosage: 2.5 MG, QD
     Route: 048
  4. DEXAMETHASONE [Concomitant]
     Dosage: 10 MG Q4W
     Route: 042
     Dates: start: 20031105
  5. COENZYME Q10 [Concomitant]
  6. GARLIC [Concomitant]
  7. DIGESTIVE ENZYMES [Concomitant]
  8. SELENIUM [Concomitant]
  9. MULTI-VITAMINS [Concomitant]
  10. LETROZOLE [Concomitant]
  11. EXEMESTANE [Concomitant]
     Dosage: 25 MG, QD
  12. MECLIZINE [Concomitant]
  13. CELEBREX [Concomitant]
     Dosage: 200 MG, QD
  14. CHEMOTHERAPEUTICS NOS [Concomitant]
  15. RISEDRONATE SODIUM [Concomitant]
     Dosage: 35 MG, QW
     Route: 048
  16. HYDROMORPHONE HYDROCHLORIDE [Concomitant]
     Dosage: 1 TABLET (4 MG) EVERY 4 - 6 HOURS AS NEEDED
     Route: 048
     Dates: start: 20100514
  17. PROPOXYPHENE HCL AND ACETAMINOPHEN [Concomitant]
     Indication: PAIN
     Dosage: 65-650 MG, 1 TABLET EVERY 4 HRS AS NEEDED
     Route: 048
     Dates: start: 20091026, end: 20100412
  18. ERGOCALCIFEROL [Concomitant]
     Dosage: 1 TABLET (5000 UNITS) EVERY WEEK
     Route: 048
     Dates: start: 20100506
  19. MORPHINE SULFATE [Concomitant]
     Dosage: 20 MG/ML; TAKE 0.5 ML (10 MG) EVERY 4 HRS AS NEEDED
     Route: 048
     Dates: start: 20100222
  20. MORPHINE SULFATE [Concomitant]
     Dosage: 20 MG/ML; TAKE 0.5 ML (10 MG) EVERY 4 HRS AS NEEDED
     Route: 048
     Dates: start: 20100409
  21. METHYLPREDNISOLONE [Concomitant]
     Dosage: 4 MG AS DIRECTED
     Route: 048
     Dates: start: 20100324
  22. FLUOXETINE HYDROCHLORIDE [Concomitant]
     Dosage: 2 CAPSULR (40 MG) EVERY DAY IN THE MORNING
     Route: 048
     Dates: start: 20100204
  23. FERROUS FUMARATE [Concomitant]
     Dosage: 1 TABLET DAILY
     Route: 048
     Dates: start: 20091022
  24. UBIDECARENONE [Concomitant]
     Dosage: 2 TABLETS OF 200 MG DAILY
     Dates: start: 20090807
  25. LORAZEPAM [Concomitant]
     Dosage: 2 MG, Q6H
     Route: 048
     Dates: start: 20090416
  26. ONDASETRON [Concomitant]
     Indication: NAUSEA
     Dosage: 4 MG, Q8H
     Dates: start: 20090416
  27. MS CONTIN [Concomitant]
     Indication: PAIN
     Dosage: 60 BID
  28. GABAPENTIN [Concomitant]
     Indication: PAIN
  29. FLUCONAZOLE [Concomitant]
     Dosage: 150 MG FOR EVERY 3 DAYS
     Route: 048
     Dates: start: 20091106
  30. ACETAMINOPHEN W/ PROPOXYPHENE HCL [Concomitant]
     Indication: PAIN
     Dosage: 100 - 650 MG, 1 TABLET EVERY 4 - 6 HRS AS NEEDED FOR PAIN
     Route: 048
     Dates: start: 20091102
  31. ACETAMINOPHEN W/ PROPOXYPHENE HCL [Concomitant]
     Dosage: 100 - 650 MG, 1 TABLET EVERY 4 - 6 HRS AS NEEDED FOR PAIN
     Route: 048
     Dates: start: 20100514
  32. PROMETHAZINE HCL [Concomitant]
     Dosage: 25 MG, Q6H
     Route: 048
     Dates: start: 20090416
  33. ESOMEPRAZOLE MAGNESIUM [Concomitant]
     Dosage: 40 MG BEFORE BREAKFAST
     Route: 048
     Dates: start: 20090416
  34. ROXANOL [Concomitant]
     Dosage: UNK
  35. COLACE [Concomitant]
     Indication: CONSTIPATION
     Dosage: AT NIGHT
  36. SENOKOT [Concomitant]
     Indication: CONSTIPATION
     Dosage: UNK
  37. DARVON [Concomitant]
  38. ATIVAN [Concomitant]
  39. TOPROL-XL [Concomitant]
     Dosage: 1 TABLET (50 MG) DIALY
     Route: 048
  40. DARVOCET-N 100 [Concomitant]
     Dosage: 100-650 MG, ONE TABLET EVERY 6 HRS
     Route: 048
  41. CIPRO [Concomitant]
     Dosage: 500 TWICE DAILY
     Route: 048
  42. ASTELIN [Concomitant]
     Dosage: TWICE DAILY AS NEEDED
  43. LEVAQUIN [Concomitant]
     Dosage: 750 MG DAILY
  44. MITOMYCIN-C + 5-FU [Concomitant]
  45. PRED FORTE [Concomitant]
  46. ZOCOR [Concomitant]
     Dosage: 20 MG DAILY
  47. ECONOPRED [Concomitant]
     Dosage: 1 DROP THRICE DAILY TO THE RIGHT EYE
  48. FISH OIL [Concomitant]
     Dosage: UNK
  49. SHARK-LIVER OIL [Concomitant]
  50. MINERAL TAB [Concomitant]
     Dosage: UNK
  51. INSULIN [Concomitant]
  52. FASLODEX [Concomitant]
     Dosage: UNK
     Dates: start: 20070806

REACTIONS (77)
  - ABDOMINAL DISTENSION [None]
  - AMAUROSIS FUGAX [None]
  - ANXIETY [None]
  - ARTHRALGIA [None]
  - ASCITES [None]
  - ASTHENIA [None]
  - ATROPHIC VULVOVAGINITIS [None]
  - BACK DISORDER [None]
  - BACK PAIN [None]
  - BENIGN NEOPLASM OF ADRENAL GLAND [None]
  - BLINDNESS [None]
  - BONE DISORDER [None]
  - BONE PAIN [None]
  - BRONCHITIS [None]
  - BRUXISM [None]
  - CATARACT [None]
  - CATARACT OPERATION [None]
  - CENTRAL NERVOUS SYSTEM LESION [None]
  - CENTRAL VENOUS CATHETERISATION [None]
  - CHOLELITHIASIS [None]
  - CHROMATURIA [None]
  - CONSTIPATION [None]
  - COUGH [None]
  - DECREASED INTEREST [None]
  - DEVICE RELATED INFECTION [None]
  - DIPLOPIA [None]
  - DIZZINESS [None]
  - DRY EYE [None]
  - DRY MOUTH [None]
  - DYSPNOEA [None]
  - DYSURIA [None]
  - EYE IRRITATION [None]
  - EYE OPERATION [None]
  - FACIAL PAIN [None]
  - FATIGUE [None]
  - GASTRITIS [None]
  - GENERAL PHYSICAL HEALTH DETERIORATION [None]
  - GLOSSITIS [None]
  - HEADACHE [None]
  - HEPATIC LESION [None]
  - HEPATIC STEATOSIS [None]
  - HIP FRACTURE [None]
  - HYPERHIDROSIS [None]
  - HYPERTHERMIA [None]
  - HYPOAESTHESIA ORAL [None]
  - HYPOTENSION [None]
  - INFLUENZA LIKE ILLNESS [None]
  - INTRAMEDULLARY ROD INSERTION [None]
  - INTRAOCULAR PRESSURE INCREASED [None]
  - IRIS ADHESIONS [None]
  - LOSS OF CONSCIOUSNESS [None]
  - LYMPHADENOPATHY [None]
  - MACULAR DEGENERATION [None]
  - METASTASES TO BONE [None]
  - METASTASES TO LIVER [None]
  - MOUTH ULCERATION [None]
  - MYALGIA [None]
  - NASAL CONGESTION [None]
  - NAUSEA [None]
  - NOCTURIA [None]
  - OSTEONECROSIS OF JAW [None]
  - PAIN [None]
  - PAIN IN EXTREMITY [None]
  - PAIN IN JAW [None]
  - PALPITATIONS [None]
  - PHYSICAL DISABILITY [None]
  - POLLAKIURIA [None]
  - RASH [None]
  - SINUS OPERATION [None]
  - SINUSITIS [None]
  - SWOLLEN TONGUE [None]
  - SYNCOPE [None]
  - TONGUE ULCERATION [None]
  - TOOTH REPAIR [None]
  - TOOTHACHE [None]
  - VERTIGO [None]
  - VISUAL IMPAIRMENT [None]
